FAERS Safety Report 8885899 (Version 1)
Quarter: 2012Q4

REPORT INFORMATION
  Report Type: 
  Country: US (occurrence: US)
  Receive Date: 20121105
  Receipt Date: 20121105
  Transmission Date: 20130627
  Serious: No
  Sender: FDA-Public Use
  Company Number: US-PFIZER INC-2012269173

PATIENT
  Sex: Male

DRUGS (1)
  1. DEPO-TESTOSTERONE [Suspect]
     Dosage: 200 mg, UNK

REACTIONS (4)
  - Erection increased [Unknown]
  - Penis disorder [Unknown]
  - Testicular disorder [Unknown]
  - Hair growth abnormal [Unknown]
